FAERS Safety Report 18694126 (Version 1)
Quarter: 2021Q1

REPORT INFORMATION
  Report Type: Spontaneous
  Country: GB (occurrence: GB)
  Receive Date: 20210104
  Receipt Date: 20210104
  Transmission Date: 20210419
  Serious: Yes (Hospitalization, Other)
  Sender: FDA-Public Use
  Company Number: GB-ACCORD-213307

PATIENT
  Age: 42 Year
  Sex: Female
  Weight: 43 kg

DRUGS (8)
  1. LEVETIRACETAM. [Suspect]
     Active Substance: LEVETIRACETAM
     Indication: SEIZURE
     Route: 042
  2. PARACETAMOL [Concomitant]
     Active Substance: ACETAMINOPHEN
  3. DALTEPARIN [Concomitant]
     Active Substance: DALTEPARIN
  4. GLYCOPYRRONIUM [Concomitant]
     Active Substance: GLYCOPYRRONIUM
  5. SERTRALINE [Concomitant]
     Active Substance: SERTRALINE HYDROCHLORIDE
  6. MELATONIN [Concomitant]
     Active Substance: MELATONIN
  7. BISOPROLOL [Concomitant]
     Active Substance: BISOPROLOL
  8. SENNA ALEXANDRINA [Concomitant]
     Active Substance: SENNA LEAF

REACTIONS (1)
  - Staphylococcal scalded skin syndrome [Unknown]
